FAERS Safety Report 6438357-2 (Version None)
Quarter: 2009Q4

REPORT INFORMATION
  Report Type: 
  Country: None (occurrence: None)
  Receive Date: 20091109
  Receipt Date: 20091026
  Transmission Date: 20100525
  Serious: Yes (Other)
  Sender: FDA-Public Use
  Company Number: 1-20530622

PATIENT
  Age: 24 Year
  Sex: Male

DRUGS (3)
  1. PREDNISOLONE [Suspect]
     Dosage: ORAL
     Route: 048
  2. TACROLIMUS [Concomitant]
  3. RAPAMYCIN [Concomitant]

REACTIONS (7)
  - BRONCHIOLITIS [None]
  - BRONCHOPULMONARY ASPERGILLOSIS [None]
  - HAEMATOCRIT DECREASED [None]
  - HAEMOGLOBIN DECREASED [None]
  - NO THERAPEUTIC RESPONSE [None]
  - PLEURAL EFFUSION [None]
  - WEIGHT DECREASED [None]
